FAERS Safety Report 11427292 (Version 1)
Quarter: 2015Q3

REPORT INFORMATION
  Report Type: Spontaneous
  Country: US (occurrence: US)
  Receive Date: 20150827
  Receipt Date: 20150827
  Transmission Date: 20151125
  Serious: No
  Sender: FDA-Public Use
  Company Number: US-SA-2014SA146709

PATIENT
  Age: 9 Year
  Sex: Male
  Weight: 52.2 kg

DRUGS (9)
  1. IBUPROFEN. [Concomitant]
     Active Substance: IBUPROFEN
  2. NORMAL SALINE [Concomitant]
     Active Substance: SODIUM CHLORIDE
  3. NEURONTIN [Concomitant]
     Active Substance: GABAPENTIN
  4. MELATONIN [Concomitant]
     Active Substance: MELATONIN
  5. HEPARIN [Concomitant]
     Active Substance: HEPARIN SODIUM
  6. EPIPEN [Concomitant]
     Active Substance: EPINEPHRINE
  7. NASONEX [Concomitant]
     Active Substance: MOMETASONE FUROATE
  8. FABRAZYME [Suspect]
     Active Substance: AGALSIDASE BETA
     Indication: LIPIDOSIS
     Route: 042
     Dates: start: 20140916
  9. WATER. [Concomitant]
     Active Substance: WATER

REACTIONS (1)
  - Poor venous access [Unknown]
